FAERS Safety Report 4510642-0 (Version None)
Quarter: 2004Q4

REPORT INFORMATION
  Report Type: 
  Country: None (occurrence: None)
  Receive Date: 20041122
  Receipt Date: 20041110
  Transmission Date: 20050328
  Serious: Yes (Other)
  Sender: FDA-Public Use
  Company Number: 2004-UK-01180UK

PATIENT
  Age: 43 Year
  Sex: Female

DRUGS (3)
  1. CLONIDINE [Suspect]
     Indication: HYPERHIDROSIS
     Dosage: PO
     Route: 048
  2. VENLAFAXINE (VENLAFAXINE) [Suspect]
     Indication: DEPRESSION
     Dosage: PO
     Route: 048
  3. TAMOXIFEN (TAMOXIFEN) [Concomitant]

REACTIONS (2)
  - DEPRESSED MOOD [None]
  - SUICIDAL IDEATION [None]
